FAERS Safety Report 5930522-3 (Version None)
Quarter: 2008Q4

REPORT INFORMATION
  Report Type: 
  Country: None (occurrence: None)
  Receive Date: 20081026
  Receipt Date: 20081017
  Transmission Date: 20090506
  Serious: Yes (Hospitalization, Other)
  Sender: FDA-Public Use
  Company Number: PHHY2008GB16988

PATIENT
  Sex: Male

DRUGS (12)
  1. COMTESS [Suspect]
     Indication: PARKINSON'S DISEASE
     Dosage: 200 MG, BID(AT 12 AND 16)
     Route: 048
     Dates: start: 20080626, end: 20080715
  2. SINEMET [Concomitant]
     Dosage: 100/25, 3 TIMES(AT 08, 12 AND 16)
  3. SINEMET [Concomitant]
     Dosage: 100/25 2 TIMES
  4. SINEMET CR [Concomitant]
     Dosage: 50/200, 1 AT 22:00
  5. TRIMIPRAMINE MALEATE [Concomitant]
     Dosage: 10 MG NOCTE
  6. FINASTERIDE [Concomitant]
     Dosage: 5 MG DAILY
  7. TAMSULOSIN HCL [Concomitant]
     Dosage: 400MG DAILY
  8. SENNA [Concomitant]
     Dosage: X2 NOCTE
  9. ASPIRIN [Concomitant]
     Dosage: 75MG  DAILY
  10. CITALOPRAM HYDROBROMIDE [Concomitant]
     Dosage: 10MG DAILY
  11. SIMVASTATIN [Concomitant]
     Dosage: 40MG NOCTE
  12. PERINDOPRIL [Concomitant]
     Dosage: 2MG DAILY

REACTIONS (5)
  - COMA [None]
  - DEPRESSED LEVEL OF CONSCIOUSNESS [None]
  - SOMNOLENCE [None]
  - SUDDEN ONSET OF SLEEP [None]
  - UNRESPONSIVE TO STIMULI [None]
